FAERS Safety Report 9008513 (Version 2)
Quarter: 2013Q1

REPORT INFORMATION
  Report Type: Spontaneous
  Country: US (occurrence: US)
  Receive Date: 20130111
  Receipt Date: 20130117
  Transmission Date: 20140127
  Serious: Yes (Other)
  Sender: FDA-Public Use
  Company Number: US-PFIZER INC-2013011403

PATIENT
  Sex: Female

DRUGS (3)
  1. LYRICA [Suspect]
     Dosage: UNK
  2. PROTONIX [Suspect]
     Dosage: UNK
  3. CALAN [Suspect]
     Dosage: UNK

REACTIONS (1)
  - Crohn^s disease [Unknown]
